FAERS Safety Report 6243677-0 (Version None)
Quarter: 2009Q2

REPORT INFORMATION
  Report Type: 
  Country: None (occurrence: None)
  Receive Date: 20090618
  Receipt Date: 20080527
  Transmission Date: 20091009
  Serious: Yes (Life-Threatening, Disabling, Other)
  Sender: FDA-Public Use
  Company Number: WAES 0804USA06021

PATIENT
  Age: 66 Year
  Sex: Male
  Weight: 108.8633 kg

DRUGS (1)
  1. COZAAR [Suspect]

REACTIONS (2)
  - BLOOD POTASSIUM INCREASED [None]
  - DRUG HYPERSENSITIVITY [None]
